FAERS Safety Report 14438849 (Version 2)
Quarter: 2018Q3

REPORT INFORMATION
  Report Type: Spontaneous
  Country: DE (occurrence: DE)
  Receive Date: 20180125
  Receipt Date: 20180921
  Transmission Date: 20181010
  Serious: Yes (Hospitalization, Other)
  Sender: FDA-Public Use
  Company Number: DE-AUROBINDO-AUR-APL-2018-002715

PATIENT
  Age: 78 Year
  Sex: Female

DRUGS (41)
  1. DUROGESIC [Suspect]
     Active Substance: FENTANYL
     Indication: PRODUCT USED FOR UNKNOWN INDICATION
     Dosage: DAILY DOSE: 75 ?G MICROGRAM(S) EVERY 3 DAY
     Route: 062
     Dates: start: 2012
  2. METAMIZOLE [Suspect]
     Active Substance: METAMIZOLE
     Dosage: 1000 MG, QD
     Route: 048
     Dates: start: 20140520, end: 20140521
  3. METAMIZOLE [Suspect]
     Active Substance: METAMIZOLE
     Dosage: 500?1000 MG, QD
     Route: 048
     Dates: start: 20140502, end: 20140517
  4. PIPAMPERON [Suspect]
     Active Substance: PIPAMPERONE HYDROCHLORIDE
     Dosage: 40 MG, UNK
     Route: 048
     Dates: start: 20140510, end: 20140513
  5. RESONIUM [Concomitant]
     Active Substance: SODIUM POLYSTYRENE SULFONATE
     Indication: PRODUCT USED FOR UNKNOWN INDICATION
     Dosage: DOSAGE FORM: UNSPECIFIED, 2 TABLE SPOON
     Route: 048
     Dates: start: 20140528
  6. OPHTALMIN N [Concomitant]
     Indication: PRODUCT USED FOR UNKNOWN INDICATION
     Dosage: 1 DF, UNK
     Route: 065
  7. METAMIZOLE [Suspect]
     Active Substance: METAMIZOLE
     Dosage: 1000 MG, QD
     Route: 048
     Dates: start: 20140523, end: 20140525
  8. INSULIN [Concomitant]
     Active Substance: INSULIN NOS
     Indication: PRODUCT USED FOR UNKNOWN INDICATION
     Dosage: 60 IE SINCE YEARS
     Route: 058
  9. INSULIN [Concomitant]
     Active Substance: INSULIN NOS
     Dosage: DAILY DOSE: 60 IU INTERNATIONAL UNIT(S) EVERY DAY
     Route: 058
  10. OPHTALMIN N [Concomitant]
     Dosage: DOSAGE FORM: UNSPECIFIED
     Route: 065
  11. LISINOPRIL. [Suspect]
     Active Substance: LISINOPRIL
     Dosage: 5 MG, UNK
     Route: 048
     Dates: start: 20140520
  12. METAMIZOLE [Suspect]
     Active Substance: METAMIZOLE
     Indication: PRODUCT USED FOR UNKNOWN INDICATION
     Dosage: DOSAGE FORM: UNSPECIFIED, 500?1000 MG ()
     Route: 048
     Dates: start: 20140502, end: 20140516
  13. METAMIZOLE [Suspect]
     Active Substance: METAMIZOLE
     Dosage: 500 MG, QD
     Route: 048
     Dates: start: 20140522, end: 20140522
  14. VENLAFAXIN [Concomitant]
     Active Substance: VENLAFAXINE HYDROCHLORIDE
     Indication: PRODUCT USED FOR UNKNOWN INDICATION
     Dosage: 30 MG, UNK
     Route: 048
     Dates: start: 2012
  15. PANTOPRAZOLE [Concomitant]
     Active Substance: PANTOPRAZOLE
     Indication: PRODUCT USED FOR UNKNOWN INDICATION
     Dosage: 40 MG, DAILY
     Route: 048
  16. DIAZEPAM. [Suspect]
     Active Substance: DIAZEPAM
     Indication: RESTLESSNESS
     Dosage: DOSAGE FORM: UNSPECIFIED, SINCE YEARS
     Route: 048
     Dates: start: 20140526, end: 20140528
  17. METAMIZOLE [Suspect]
     Active Substance: METAMIZOLE
     Dosage: 500 MG, QD
     Route: 048
     Dates: start: 20140526, end: 20140528
  18. PIPAMPERON [Suspect]
     Active Substance: PIPAMPERONE HYDROCHLORIDE
     Dosage: 120 MG, UNK
     Route: 048
     Dates: start: 20140527, end: 20140527
  19. STILNOX [Suspect]
     Active Substance: ZOLPIDEM TARTRATE
     Indication: PRODUCT USED FOR UNKNOWN INDICATION
     Dosage: DOSAGE FORM: UNSPECIFIED
     Route: 048
     Dates: start: 20140527
  20. DIAZEPAM. [Suspect]
     Active Substance: DIAZEPAM
     Dosage: DOSAGE FORM: UNSPECIFIED, IN NIGHTS 26/27?MAY?2014 AND 27/28?MAY?2014 IN TOTAL 30 MG IN 26 HOURS ()
     Route: 030
  21. LISINOPRIL. [Suspect]
     Active Substance: LISINOPRIL
     Indication: PRODUCT USED FOR UNKNOWN INDICATION
     Dosage: 2.5 UNK, UNK
     Route: 048
     Dates: start: 20140524
  22. ARIPIPRAZOLE. [Interacting]
     Active Substance: ARIPIPRAZOLE
     Indication: PRODUCT USED FOR UNKNOWN INDICATION
     Dosage: DOSAGE FORM: UNSPECIFIED
     Route: 048
     Dates: start: 20140508, end: 20140514
  23. METAMIZOLE [Suspect]
     Active Substance: METAMIZOLE
     Dosage: 2000 MG, QD
     Route: 048
     Dates: start: 20140518, end: 20140519
  24. PIPAMPERON [Suspect]
     Active Substance: PIPAMPERONE HYDROCHLORIDE
     Indication: PRODUCT USED FOR UNKNOWN INDICATION
     Dosage: 20 MG, UNK
     Route: 048
     Dates: start: 20140508, end: 20140509
  25. PIPAMPERON [Suspect]
     Active Substance: PIPAMPERONE HYDROCHLORIDE
     Dosage: 60 MG, UNK
     Route: 048
     Dates: start: 20140515, end: 20140524
  26. AMLODIPINE [Concomitant]
     Active Substance: AMLODIPINE BESYLATE
     Indication: PRODUCT USED FOR UNKNOWN INDICATION
     Dosage: DOSAGE FORM: UNSPECIFIED
     Route: 048
     Dates: start: 2011
  27. PREDNISOLONE. [Concomitant]
     Active Substance: PREDNISOLONE
     Indication: PRODUCT USED FOR UNKNOWN INDICATION
     Dosage: DOSAGE FORM: UNSPECIFIED
     Route: 048
     Dates: start: 20140528
  28. MIRTAZAPINE. [Suspect]
     Active Substance: MIRTAZAPINE
     Indication: PRODUCT USED FOR UNKNOWN INDICATION
     Dosage: DOSAGE FORM: UNSPECIFIED, SINCE YEARS
     Route: 048
  29. CLOPIDOGREL [Concomitant]
     Active Substance: CLOPIDOGREL BISULFATE
     Indication: PRODUCT USED FOR UNKNOWN INDICATION
     Dosage: DAILY DOSE: 75 MG MILLIGRAM(S) EVERY DAY
     Route: 048
     Dates: start: 2011
  30. INSULIN [Concomitant]
     Active Substance: INSULIN NOS
     Dosage: 60 IU, QD
     Route: 058
  31. METAMIZOLE [Suspect]
     Active Substance: METAMIZOLE
     Dosage: DOSAGE FORM: UNSPECIFIED, 500?1000 MG
     Route: 048
     Dates: start: 20140517, end: 20140517
  32. SIMVASTATIN. [Concomitant]
     Active Substance: SIMVASTATIN
     Indication: PRODUCT USED FOR UNKNOWN INDICATION
     Dosage: DAILY DOSE: 10 MG MILLIGRAM(S) EVERY DAY
     Route: 048
     Dates: start: 20140201
  33. FOLIC ACID. [Concomitant]
     Active Substance: FOLIC ACID
     Indication: PRODUCT USED FOR UNKNOWN INDICATION
     Dosage: DOSAGE FORM: UNSPECIFIED
     Route: 048
     Dates: start: 20140502
  34. INSULIN [Concomitant]
     Active Substance: INSULIN NOS
     Dosage: DAILY DOSE: 60 IU INTERNATIONAL UNIT(S) EVERY DAY
     Route: 065
  35. MACROGOL [Concomitant]
     Active Substance: POLYETHYLENE GLYCOLS
     Indication: PRODUCT USED FOR UNKNOWN INDICATION
     Dosage: DAILY DOSE: 1 DF DOSAGE FORM EVERY DAY
     Route: 048
     Dates: start: 2011
  36. FORMOTEROL [Concomitant]
     Active Substance: FORMOTEROL
     Indication: PRODUCT USED FOR UNKNOWN INDICATION
     Dosage: DAILY DOSE: 1 DF DOSAGE FORM EVERY DAY
     Route: 065
     Dates: start: 201312
  37. ARIPIPRAZOLE. [Interacting]
     Active Substance: ARIPIPRAZOLE
     Dosage: DOSAGE FORM: UNSPECIFIED
     Route: 048
     Dates: start: 20140515, end: 20140520
  38. METAMIZOLE [Suspect]
     Active Substance: METAMIZOLE
     Dosage: 500 MG, QD
     Route: 048
     Dates: start: 20140530
  39. METAMIZOLE [Suspect]
     Active Substance: METAMIZOLE
     Dosage: 1500 MG, UNK
     Route: 048
     Dates: start: 20170517, end: 20170517
  40. PIPAMPERON [Suspect]
     Active Substance: PIPAMPERONE HYDROCHLORIDE
     Dosage: 80 MG, UNK
     Route: 048
     Dates: start: 20140525, end: 20140526
  41. PIPAMPERON [Suspect]
     Active Substance: PIPAMPERONE HYDROCHLORIDE
     Dosage: 20 MG, UNK
     Route: 048
     Dates: start: 20140528, end: 20140528

REACTIONS (14)
  - Left ventricular hypertrophy [Unknown]
  - Syncope [Recovered/Resolved]
  - Myoclonus [Unknown]
  - Drug interaction [Unknown]
  - Prescribed underdose [Unknown]
  - Fall [Unknown]
  - Rash [Unknown]
  - Loss of consciousness [Recovered/Resolved]
  - Facial nerve disorder [Unknown]
  - Hypokalaemia [Unknown]
  - Pancytopenia [Recovered/Resolved]
  - Restlessness [Unknown]
  - Diarrhoea [Unknown]
  - Dysarthria [Unknown]

NARRATIVE: CASE EVENT DATE: 20140519
